FAERS Safety Report 7951743-4 (Version None)
Quarter: 2011Q4

REPORT INFORMATION
  Report Type: 
  Country: None (occurrence: None)
  Receive Date: 20111201
  Receipt Date: 20111121
  Transmission Date: 20120403
  Serious: Yes (Death, Hospitalization)
  Sender: FDA-Public Use
  Company Number: AT-JNJFOC-20111109328

PATIENT
  Sex: Male

DRUGS (2)
  1. BEZAFIBRAT [Concomitant]
     Indication: BLOOD CHOLESTEROL INCREASED
  2. STELARA [Suspect]
     Indication: PSORIASIS
     Route: 058
     Dates: start: 20090101

REACTIONS (2)
  - LYMPHOMA [None]
  - INTESTINAL PERFORATION [None]
